FAERS Safety Report 7047193-8 (Version None)
Quarter: 2010Q4

REPORT INFORMATION
  Report Type: 
  Country: None (occurrence: None)
  Receive Date: 20101014
  Receipt Date: 20101014
  Transmission Date: 20110411
  Serious: Yes (Other)
  Sender: FDA-Public Use
  Company Number: None

PATIENT
  Weight: 68.0396 kg

DRUGS (1)
  1. LUPRON DEPOT [Suspect]
     Indication: PRECOCIOUS PUBERTY
     Dosage: 15MG MONTHLY IM
     Route: 030
     Dates: start: 20101006, end: 20101006

REACTIONS (2)
  - INJURY ASSOCIATED WITH DEVICE [None]
  - MEDICATION ERROR [None]
